FAERS Safety Report 14667482 (Version 1)
Quarter: 2018Q1

REPORT INFORMATION
  Report Type: Spontaneous
  Country: US (occurrence: US)
  Receive Date: 20180322
  Receipt Date: 20180322
  Transmission Date: 20180509
  Serious: Yes (Other)
  Sender: FDA-Public Use
  Company Number: US-BAYER-2016-235683

PATIENT
  Age: 29 Year
  Sex: Female

DRUGS (6)
  1. DEPO-PROVERA [Concomitant]
     Active Substance: MEDROXYPROGESTERONE ACETATE
     Indication: MENORRHAGIA
  2. YAZ [Suspect]
     Active Substance: DROSPIRENONE\ETHINYL ESTRADIOL
     Indication: MENSTRUAL CYCLE MANAGEMENT
     Dosage: UNK
     Dates: start: 20100204, end: 20100304
  3. DEPO-PROVERA [Concomitant]
     Active Substance: MEDROXYPROGESTERONE ACETATE
     Indication: VAGINAL HAEMORRHAGE
     Dosage: UNK
     Dates: start: 20091031, end: 20100204
  4. DEPO-PROVERA [Concomitant]
     Active Substance: MEDROXYPROGESTERONE ACETATE
     Indication: CONTRACEPTION
  5. PROVERA [Concomitant]
     Active Substance: MEDROXYPROGESTERONE ACETATE
     Indication: GENITAL HAEMORRHAGE
     Dosage: 10 MG, UNK
     Dates: start: 20100120, end: 20100204
  6. ESSURE [Suspect]
     Active Substance: DEVICE
     Indication: FEMALE STERILISATION
     Dosage: UNK
     Dates: start: 20091111

REACTIONS (18)
  - Weight fluctuation [Not Recovered/Not Resolved]
  - Menorrhagia [Unknown]
  - Weight decreased [Unknown]
  - Dysmenorrhoea [Not Recovered/Not Resolved]
  - Abdominal pain lower [Not Recovered/Not Resolved]
  - Vaginal infection [Not Recovered/Not Resolved]
  - Fatigue [Not Recovered/Not Resolved]
  - Back pain [Not Recovered/Not Resolved]
  - Drug ineffective [Unknown]
  - Headache [Not Recovered/Not Resolved]
  - Genital haemorrhage [Not Recovered/Not Resolved]
  - Dyspareunia [Not Recovered/Not Resolved]
  - Migraine [Not Recovered/Not Resolved]
  - Vaginal discharge [Not Recovered/Not Resolved]
  - Vaginal haemorrhage [Unknown]
  - Pelvic pain [Not Recovered/Not Resolved]
  - Weight increased [Unknown]
  - Abdominal pain [Not Recovered/Not Resolved]

NARRATIVE: CASE EVENT DATE: 20091203
